FAERS Safety Report 25939627 (Version 1)
Quarter: 2025Q4

REPORT INFORMATION
  Report Type: Spontaneous
  Country: US (occurrence: US)
  Receive Date: 20251020
  Receipt Date: 20251020
  Transmission Date: 20260118
  Serious: Yes (Life-Threatening, Hospitalization, Other)
  Sender: SANDOZ
  Company Number: US-INCYTE CORPORATION-2023IN008305

PATIENT
  Age: 14 Year
  Sex: Female

DRUGS (11)
  1. LEXAPRO [Suspect]
     Active Substance: ESCITALOPRAM OXALATE
     Indication: Depression
     Dosage: 10 MG, QD
     Route: 048
  2. METHOTREXATE [Suspect]
     Active Substance: METHOTREXATE
     Dosage: 15 MG
     Route: 037
     Dates: start: 20230822
  3. METHOTREXATE [Suspect]
     Active Substance: METHOTREXATE
     Dosage: 15 MILLIGRAM X 2 DOSES
     Route: 037
     Dates: start: 20230615, end: 20230725
  4. METHOTREXATE [Suspect]
     Active Substance: METHOTREXATE
     Indication: Acute lymphocytic leukaemia
     Dosage: 210 MG
     Route: 048
     Dates: start: 20230615, end: 20230615
  5. METHOTREXATE [Suspect]
     Active Substance: METHOTREXATE
     Dosage: 317 MILLIGRAM X 2 DOSES
     Route: 042
     Dates: start: 20230626, end: 20230711
  6. METHOTREXATE [Suspect]
     Active Substance: METHOTREXATE
     Dosage: 41.25 MG, QW (ONCE PER WEEK)
     Route: 048
     Dates: start: 20230829
  7. MERCAPTOPURINE [Suspect]
     Active Substance: MERCAPTOPURINE
     Indication: Acute lymphocytic leukaemia
     Dosage: 150 MG 6 DAYS/WEEK, 175 MG 1 DAY/WEEK
     Route: 048
     Dates: start: 20230822
  8. ONDANSETRON [Suspect]
     Active Substance: ONDANSETRON
     Indication: Acute lymphocytic leukaemia
     Dosage: 8 MG, Q8H
     Route: 048
     Dates: start: 20230830
  9. VINCRISTINE [Suspect]
     Active Substance: VINCRISTINE
     Dosage: 2 MG
     Route: 042
     Dates: start: 20230822
  10. VINCRISTINE [Suspect]
     Active Substance: VINCRISTINE
     Indication: Acute lymphocytic leukaemia
     Dosage: 2 MG X 5 DOSES
     Route: 042
     Dates: start: 20230615, end: 20230801
  11. ASPARAGINASE [Concomitant]
     Active Substance: ASPARAGINASE
     Indication: Acute lymphocytic leukaemia
     Dosage: 100 MG X 6 DOSES
     Route: 042
     Dates: start: 20230616, end: 20230721

REACTIONS (8)
  - Electrocardiogram QT prolonged [Recovered/Resolved]
  - Febrile neutropenia [Recovered/Resolved]
  - Syncope [Recovered/Resolved]
  - Stomatitis [Recovered/Resolved]
  - Hepatic failure [Recovered/Resolved]
  - Hyperammonaemia [Not Recovered/Not Resolved]
  - Encephalopathy [Recovered/Resolved]
  - Chest pain [Recovered/Resolved]

NARRATIVE: CASE EVENT DATE: 20230808
